FAERS Safety Report 8435846-6 (Version None)
Quarter: 2012Q2

REPORT INFORMATION
  Report Type: 
  Country: None (occurrence: None)
  Receive Date: 20120608
  Receipt Date: 20120608
  Transmission Date: 20120825
  Serious: Yes (Hospitalization)
  Sender: FDA-Public Use
  Company Number: None

PATIENT
  Sex: Male
  Weight: 65 kg

DRUGS (6)
  1. CYCLOPHOSPHAMIDE [Suspect]
     Dosage: 1230 MG
  2. PREDNISONE TAB [Suspect]
     Dosage: 1000 MG
  3. ETOPOSIDE [Suspect]
     Dosage: 328 MG
  4. RITUXIMAB (MOAB C2B8 ANTI CD20, CHIMERIC) [Suspect]
     Dosage: 615 MG
  5. DOXORUBICIN HYDROCHLORIDE [Suspect]
     Dosage: 65.6 MG
  6. VINCRISTINE SULFATE [Suspect]
     Dosage: 2,624 MG

REACTIONS (6)
  - DIFFUSE LARGE B-CELL LYMPHOMA [None]
  - DYSPHAGIA [None]
  - ASTHENIA [None]
  - APHAGIA [None]
  - PERIODONTAL DISEASE [None]
  - CACHEXIA [None]
